FAERS Safety Report 5069595-1 (Version None)
Quarter: 2006Q3

REPORT INFORMATION
  Report Type: 
  Country: None (occurrence: None)
  Receive Date: 20060731
  Receipt Date: 20060725
  Transmission Date: 20061208
  Serious: Yes (Hospitalization, Other)
  Sender: FDA-Public Use
  Company Number: FRWYE354725JUL06

PATIENT
  Age: 86 Year
  Sex: Female

DRUGS (9)
  1. ADVIL [Suspect]
     Indication: TONSILLITIS
     Dosage: ORAL
     Route: 048
     Dates: start: 20060222, end: 20060301
  2. AMOXICILLIN [Suspect]
     Indication: TONSILLITIS
     Dosage: ORAL
     Route: 048
     Dates: start: 20060222, end: 20060301
  3. ACETAMINOPHEN [Suspect]
     Indication: TONSILLITIS
     Dosage: ORAL
     Route: 048
     Dates: start: 20060222, end: 20060226
  4. THIOVALONE (TIXOCORTOL PIVALATE) [Suspect]
     Indication: TONSILLITIS
     Dosage: OROPHARYNGEAL
     Route: 049
     Dates: start: 20060222, end: 20060226
  5. HYPERIUM (RILMENIDINE) [Concomitant]
  6. ASPIRIN [Concomitant]
  7. TORENTAL (PENTOXIFYLLINE) [Concomitant]
  8. CALCITONIN SALMON [Concomitant]
  9. LEMOXIL (BROMAZEPAM) [Concomitant]

REACTIONS (1)
  - TOXIC SKIN ERUPTION [None]
